FAERS Safety Report 9422876 (Version 2)
Quarter: 2013Q3

REPORT INFORMATION
  Report Type: Report from Study
  Country: US (occurrence: US)
  Receive Date: 20130726
  Receipt Date: 20130905
  Transmission Date: 20140515
  Serious: No
  Sender: FDA-Public Use
  Company Number: US-VERTEX PHARMACEUTICALS INC-2013-008268

PATIENT
  Age: 58 Year
  Sex: Male

DRUGS (12)
  1. VX-950 (TELAPREVIR) [Suspect]
     Indication: HEPATITIS C
     Dosage: 750 MG, TID
     Route: 048
     Dates: start: 20130719, end: 20130811
  2. VX-950 (TELAPREVIR) [Suspect]
     Dosage: 750 MG, TID
     Route: 048
     Dates: start: 20130830
  3. PEGASYS [Suspect]
     Indication: HEPATITIS C
     Dosage: 180 ?G, QW
     Route: 058
     Dates: start: 20130719, end: 20130811
  4. PEGASYS [Suspect]
     Dosage: 180 ?G, QW
     Route: 058
     Dates: start: 20130830
  5. RIBAVIRIN [Suspect]
     Indication: HEPATITIS C
     Dosage: 600 MG, BID
     Route: 048
     Dates: start: 20130719, end: 20130811
  6. RIBAVIRIN [Suspect]
     Dosage: 600 MG, BID
     Route: 048
     Dates: start: 20130830
  7. PLAVIX [Concomitant]
     Dosage: 75 MG, UNK
  8. ASPIRIN [Concomitant]
     Dosage: 81 MG, QD
     Route: 048
  9. DIOVAN HCT [Concomitant]
     Dosage: 160/12.5 MG
  10. DILTIAZEM ER [Concomitant]
     Dosage: 180 MG, UNK
  11. LIVALO [Concomitant]
     Dosage: 4 MG, UNK
  12. PROCTOFOAM HC [Concomitant]
     Dosage: 1%-1%, TID
     Route: 061

REACTIONS (3)
  - Influenza like illness [Recovered/Resolved]
  - Diarrhoea [Recovered/Resolved]
  - Anorectal discomfort [Recovered/Resolved]
